FAERS Safety Report 14574879 (Version 1)
Quarter: 2018Q1

REPORT INFORMATION
  Report Type: Spontaneous
  Country: US (occurrence: US)
  Receive Date: 20180227
  Receipt Date: 20180227
  Transmission Date: 20180509
  Serious: No
  Sender: FDA-Public Use
  Company Number: US-ROCHE-1980577

PATIENT
  Age: 35 Year
  Sex: Female
  Weight: 122.13 kg

DRUGS (1)
  1. XOLAIR [Suspect]
     Active Substance: OMALIZUMAB
     Indication: ASTHMA
     Route: 058
     Dates: start: 201206, end: 20170623

REACTIONS (5)
  - Lymphadenopathy [Unknown]
  - Mechanical urticaria [Unknown]
  - Arthralgia [Recovered/Resolved]
  - Night sweats [Unknown]
  - Serum sickness [Unknown]

NARRATIVE: CASE EVENT DATE: 201612
